FAERS Safety Report 15895031 (Version 2)
Quarter: 2019Q1

REPORT INFORMATION
  Report Type: Spontaneous
  Country: PL (occurrence: PL)
  Receive Date: 20190131
  Receipt Date: 20190322
  Transmission Date: 20190417
  Serious: Yes (Other)
  Sender: FDA-Public Use
  Company Number: PL-ELI_LILLY_AND_COMPANY-PL201812003113

PATIENT
  Age: 70 Year
  Sex: Male

DRUGS (8)
  1. HUMAN INSULIN [Suspect]
     Active Substance: INSULIN HUMAN
     Dosage: 26 U, DAILY
     Route: 065
  2. INSULIN GLARGINE [Suspect]
     Active Substance: INSULIN GLARGINE
     Indication: TYPE 2 DIABETES MELLITUS
     Dosage: UNK UNK, DAILY
     Route: 065
  3. RAMIPRIL. [Suspect]
     Active Substance: RAMIPRIL
     Indication: HYPERTENSION
     Dosage: 10 MG, DAILY
     Route: 048
  4. HUMAN INSULIN [Suspect]
     Active Substance: INSULIN HUMAN
     Indication: TYPE 2 DIABETES MELLITUS
     Dosage: 10 U, DAILY
     Route: 065
  5. METFORMIN [Suspect]
     Active Substance: METFORMIN HYDROCHLORIDE
     Dosage: 500 MG, TID
     Route: 048
  6. GLICLAZIDE [Suspect]
     Active Substance: GLICLAZIDE
     Indication: DIABETES MELLITUS
     Dosage: 120 MG, DAILY
     Route: 048
  7. METFORMIN [Suspect]
     Active Substance: METFORMIN HYDROCHLORIDE
     Indication: TYPE 2 DIABETES MELLITUS
     Dosage: 850 MG, TID
     Route: 048
  8. INDAPAMIDE. [Suspect]
     Active Substance: INDAPAMIDE
     Indication: HYPERTENSION
     Dosage: 2.5 MG, DAILY
     Route: 048

REACTIONS (8)
  - Hyperglycaemia [Unknown]
  - Renal impairment [Recovered/Resolved]
  - Blood glucose increased [Recovering/Resolving]
  - Drug ineffective [Unknown]
  - Glycosylated haemoglobin increased [Recovering/Resolving]
  - Weight increased [Unknown]
  - Hypoglycaemia [Recovered/Resolved]
  - Glomerular filtration rate decreased [Recovering/Resolving]
